FAERS Safety Report 5452234-5 (Version None)
Quarter: 2007Q3

REPORT INFORMATION
  Report Type: 
  Country: None (occurrence: None)
  Receive Date: 20070912
  Receipt Date: 20070912
  Transmission Date: 20080115
  Serious: Yes (Hospitalization)
  Sender: FDA-Public Use
  Company Number: None

PATIENT
  Sex: Male
  Weight: 85 kg

DRUGS (3)
  1. CISPLATIN [Suspect]
     Dosage: 200 MG
     Dates: end: 20070820
  2. LEXAPRO [Concomitant]
  3. TYLENOL (CAPLET) [Concomitant]

REACTIONS (23)
  - ANXIETY [None]
  - BLOOD CREATININE DECREASED [None]
  - BLOOD PHOSPHORUS DECREASED [None]
  - COUGH [None]
  - DEHYDRATION [None]
  - DRUG HYPERSENSITIVITY [None]
  - HAEMOGLOBIN DECREASED [None]
  - INFECTION [None]
  - INFLUENZA [None]
  - LUNG INFILTRATION [None]
  - MUCOSAL INFLAMMATION [None]
  - NAUSEA [None]
  - NEUTROPENIA [None]
  - ORAL PAIN [None]
  - PLATELET COUNT INCREASED [None]
  - PNEUMONIA [None]
  - PYREXIA [None]
  - RASH [None]
  - RED BLOOD CELL COUNT DECREASED [None]
  - SINUS CONGESTION [None]
  - THROMBOCYTOPENIA [None]
  - VOMITING [None]
  - WHITE BLOOD CELL COUNT DECREASED [None]
